FAERS Safety Report 5015991-8 (Version None)
Quarter: 2006Q2

REPORT INFORMATION
  Report Type: 
  Country: None (occurrence: None)
  Receive Date: 20060525
  Receipt Date: 20060505
  Transmission Date: 20061013
  Serious: No
  Sender: FDA-Public Use
  Company Number: IT200605002355

PATIENT
  Age: 47 Year
  Sex: Male

DRUGS (1)
  1. CIALIS [Suspect]
     Indication: PSYCHOGENIC ERECTILE DYSFUNCTION
     Dosage: 20 MG, WEEKLY (1/W), ORAL
     Route: 048
     Dates: start: 20050101

REACTIONS (1)
  - OPTIC NEURITIS RETROBULBAR [None]
